FAERS Safety Report 25940440 (Version 1)
Quarter: 2025Q4

REPORT INFORMATION
  Report Type: Spontaneous
  Country: US (occurrence: None)
  Receive Date: 20251017
  Receipt Date: 20251017
  Transmission Date: 20260117
  Serious: Yes (Hospitalization)
  Sender: FDA-CTU
  Company Number: None

PATIENT
  Age: 62 Year
  Sex: Male
  Weight: 86.4 kg

DRUGS (5)
  1. MOUNJARO [Suspect]
     Active Substance: TIRZEPATIDE
     Indication: Diabetes mellitus
     Dosage: OTHER QUANTITY : 1 INJECTION(S);?OTHER FREQUENCY : N/A;?
     Route: 030
     Dates: start: 20250919, end: 20251003
  2. ZOFRAN [Suspect]
     Active Substance: ONDANSETRON HYDROCHLORIDE
  3. Insulin farziga statins [Concomitant]
  4. acid reducers [Concomitant]
  5. ASPIRIN [Concomitant]
     Active Substance: ASPIRIN

REACTIONS (11)
  - Nausea [None]
  - Vomiting [None]
  - Hiccups [None]
  - Gastrooesophageal reflux disease [None]
  - Abdominal discomfort [None]
  - Dehydration [None]
  - Abdominal pain upper [None]
  - Heart rate increased [None]
  - Blood potassium decreased [None]
  - Vision blurred [None]
  - Urinary retention [None]

NARRATIVE: CASE EVENT DATE: 20251004
